FAERS Safety Report 8231921-X (Version None)
Quarter: 2012Q1

REPORT INFORMATION
  Report Type: 
  Country: None (occurrence: None)
  Receive Date: 20120323
  Receipt Date: 20120313
  Transmission Date: 20120608
  Serious: No
  Sender: FDA-Public Use
  Company Number: US-BAYER-2012-024936

PATIENT
  Sex: Female

DRUGS (1)
  1. MIRENA [Suspect]
     Dosage: 20 MCG/24HR, CONT
     Route: 015
     Dates: start: 20100101

REACTIONS (6)
  - FATIGUE [None]
  - MALAISE [None]
  - NAUSEA [None]
  - ABDOMINAL PAIN LOWER [None]
  - AMENORRHOEA [None]
  - HEADACHE [None]
